APPROVED DRUG PRODUCT: LEVORA 0.15/30-28
Active Ingredient: ETHINYL ESTRADIOL; LEVONORGESTREL
Strength: 0.03MG;0.15MG
Dosage Form/Route: TABLET;ORAL-28
Application: A073594 | Product #001 | TE Code: AB
Applicant: DR REDDYS LABORATORIES SA
Approved: Dec 13, 1993 | RLD: No | RS: Yes | Type: RX